FAERS Safety Report 18446522 (Version 1)
Quarter: 2020Q4

REPORT INFORMATION
  Report Type: Spontaneous
  Country: US (occurrence: US)
  Receive Date: 20201030
  Receipt Date: 20201030
  Transmission Date: 20210114
  Serious: Yes (Other)
  Sender: FDA-Public Use
  Company Number: None

PATIENT
  Age: 31 Year
  Sex: Female

DRUGS (7)
  1. CAPECITABINE 500MG [Suspect]
     Active Substance: CAPECITABINE
     Indication: BREAST CANCER
     Route: 048
     Dates: start: 20201013
  2. BUPROPION. [Concomitant]
     Active Substance: BUPROPION
  3. LITHIUM CARB [Concomitant]
     Active Substance: LITHIUM CARBONATE
  4. LAMOTRIGINE. [Concomitant]
     Active Substance: LAMOTRIGINE
  5. TRAZODONE [Concomitant]
     Active Substance: TRAZODONE HYDROCHLORIDE
  6. ZOLPIDEM [Concomitant]
     Active Substance: ZOLPIDEM TARTRATE
  7. ARIPIPRAZOLE. [Concomitant]
     Active Substance: ARIPIPRAZOLE

REACTIONS (2)
  - Therapy interrupted [None]
  - Craniectomy [None]

NARRATIVE: CASE EVENT DATE: 20201013
